FAERS Safety Report 17583903 (Version 3)
Quarter: 2020Q2

REPORT INFORMATION
  Report Type: Spontaneous
  Country: BR (occurrence: BR)
  Receive Date: 20200326
  Receipt Date: 20200519
  Transmission Date: 20200713
  Serious: Yes (Other)
  Sender: FDA-Public Use
  Company Number: BR-GLAXOSMITHKLINE-BR2020AMR050160

PATIENT
  Age: 64 Year
  Sex: Female

DRUGS (1)
  1. RELVAR ELLIPTA [Suspect]
     Active Substance: FLUTICASONE FUROATE\VILANTEROL TRIFENATATE
     Indication: PRODUCT USED FOR UNKNOWN INDICATION
     Dosage: 1 DF, QD, 1 INHALTION, 30 DOSES
     Route: 055

REACTIONS (7)
  - Suspected COVID-19 [Unknown]
  - Quarantine [Unknown]
  - Malaise [Unknown]
  - Tuberculosis [Unknown]
  - Pertussis [Unknown]
  - Intentional dose omission [Unknown]
  - Product complaint [Unknown]
